FAERS Safety Report 15460706 (Version 1)
Quarter: 2018Q4

REPORT INFORMATION
  Report Type: Spontaneous
  Country: FR (occurrence: FR)
  Receive Date: 20181003
  Receipt Date: 20181003
  Transmission Date: 20190204
  Serious: Yes (Hospitalization)
  Sender: FDA-Public Use
  Company Number: PHHY2018FR111646

PATIENT
  Age: 80 Year
  Sex: Female

DRUGS (4)
  1. FLAGYL [Interacting]
     Active Substance: METRONIDAZOLE\METRONIDAZOLE HYDROCHLORIDE
     Indication: LUNG INFECTION
     Dosage: 500 MG, QD
     Route: 048
     Dates: start: 20120718
  2. PREVISCAN (FLUINDIONE) [Interacting]
     Active Substance: FLUINDIONE
     Indication: PRODUCT USED FOR UNKNOWN INDICATION
     Dosage: 15 MG, QD
     Route: 048
     Dates: end: 20120719
  3. CORTANCYL [Concomitant]
     Active Substance: PREDNISONE
     Indication: VASCULITIS
     Route: 065
  4. CEFTRIAXONE. [Suspect]
     Active Substance: CEFTRIAXONE
     Indication: LUNG INFECTION
     Dosage: 1 G, QD
     Route: 042
     Dates: start: 20120715

REACTIONS (3)
  - International normalised ratio increased [Recovered/Resolved]
  - Drug interaction [Unknown]
  - Rectal haemorrhage [Recovered/Resolved]

NARRATIVE: CASE EVENT DATE: 20120719
